FAERS Safety Report 7349495-4 (Version None)
Quarter: 2011Q1

REPORT INFORMATION
  Report Type: 
  Country: None (occurrence: None)
  Receive Date: 20110314
  Receipt Date: 20110222
  Transmission Date: 20110831
  Serious: No
  Sender: FDA-Public Use
  Company Number: US-ABBOTT-11P-163-0707382-00

PATIENT
  Sex: Female
  Weight: 52.21 kg

DRUGS (5)
  1. DEPAKOTE [Suspect]
     Indication: MANIA
     Dosage: 2 X 500 MG TAB + 250 MG TAB
     Dates: start: 20101201
  2. DEPAKOTE [Suspect]
     Indication: MANIA
     Dosage: 2 X 500 MG TAB + 250 MG TAB
     Dates: start: 20101201
  3. DEPAKOTE [Suspect]
     Indication: BIPOLAR DISORDER
  4. DEPAKOTE [Suspect]
     Indication: BIPOLAR DISORDER
  5. DEPAKOTE [Suspect]
     Dates: start: 20101001, end: 20101201

REACTIONS (1)
  - ALOPECIA [None]
